FAERS Safety Report 17430622 (Version 5)
Quarter: 2020Q3

REPORT INFORMATION
  Report Type: Spontaneous
  Country: US (occurrence: US)
  Receive Date: 20200218
  Receipt Date: 20200812
  Transmission Date: 20201102
  Serious: Yes (Hospitalization, Other)
  Sender: FDA-Public Use
  Company Number: US-PFIZER INC-2020069191

PATIENT
  Age: 57 Year
  Sex: Female
  Weight: 114.3 kg

DRUGS (6)
  1. XELJANZ [Suspect]
     Active Substance: TOFACITINIB CITRATE
     Indication: ARTHROPATHY
     Dosage: 5 MG, 2X/DAY
     Dates: start: 201607
  2. XELJANZ [Suspect]
     Active Substance: TOFACITINIB CITRATE
     Indication: BURSITIS
  3. XELJANZ [Suspect]
     Active Substance: TOFACITINIB CITRATE
     Indication: TENDONITIS
  4. XELJANZ [Suspect]
     Active Substance: TOFACITINIB CITRATE
     Indication: ARTHRITIS
  5. XELJANZ [Suspect]
     Active Substance: TOFACITINIB CITRATE
     Indication: RHEUMATOID ARTHRITIS
     Dosage: 5 MG, 2X/DAY
     Route: 048
  6. XELJANZ [Suspect]
     Active Substance: TOFACITINIB CITRATE
     Indication: OSTEOARTHRITIS

REACTIONS (4)
  - Concussion [Unknown]
  - Fall [Unknown]
  - Weight increased [Unknown]
  - Nephrolithiasis [Recovered/Resolved]

NARRATIVE: CASE EVENT DATE: 201909
